FAERS Safety Report 24827271 (Version 3)
Quarter: 2025Q2

REPORT INFORMATION
  Report Type: Spontaneous
  Country: US (occurrence: US)
  Receive Date: 20250109
  Receipt Date: 20250511
  Transmission Date: 20250717
  Serious: Yes (Hospitalization)
  Sender: SANOFI AVENTIS
  Company Number: US-SA-2025SA007053

PATIENT
  Age: 75 Year
  Sex: Female

DRUGS (1)
  1. DUPIXENT [Suspect]
     Active Substance: DUPILUMAB
     Indication: Asthma
     Dosage: 300 MG, QOW
     Route: 058
     Dates: start: 202407, end: 20250102

REACTIONS (8)
  - Lung disorder [Unknown]
  - COVID-19 [Unknown]
  - Blood potassium decreased [Unknown]
  - Hypotension [Unknown]
  - Eye discharge [Unknown]
  - Vision blurred [Unknown]
  - Eye irritation [Unknown]
  - Product storage error [Unknown]

NARRATIVE: CASE EVENT DATE: 20240101
